FAERS Safety Report 9877740 (Version 2)
Quarter: 2014Q1

REPORT INFORMATION
  Report Type: Other
  Country: US (occurrence: US)
  Receive Date: 20140206
  Receipt Date: 20140206
  Transmission Date: 20141002
  Serious: No
  Sender: FDA-Public Use
  Company Number: US-ACORDA-ACO_38829_2013

PATIENT
  Sex: Female
  Weight: 103.4 kg

DRUGS (4)
  1. AMPYRA [Suspect]
     Indication: GAIT DISTURBANCE
     Dosage: 10 MG, BID
     Route: 048
     Dates: start: 201110, end: 201208
  2. AMPYRA [Suspect]
     Dosage: 10 MG, BID
     Route: 048
     Dates: start: 2013
  3. BETASERON [Suspect]
     Indication: MULTIPLE SCLEROSIS
     Dosage: UNK
     Route: 065
     Dates: end: 201208
  4. BETASERON [Suspect]
     Dosage: UNK
     Dates: start: 2013

REACTIONS (4)
  - Maternal exposure before pregnancy [Unknown]
  - Injection site reaction [Unknown]
  - Injection site pruritus [Unknown]
  - Somnolence [Unknown]
